FAERS Safety Report 4588243-8 (Version None)
Quarter: 2005Q1

REPORT INFORMATION
  Report Type: 
  Country: None (occurrence: None)
  Receive Date: 20050221
  Receipt Date: 20050208
  Transmission Date: 20050727
  Serious: Yes (Other)
  Sender: FDA-Public Use
  Company Number: FR-ROCHE-395131

PATIENT
  Age: 44 Year
  Sex: Female

DRUGS (8)
  1. ROVALCYTE [Suspect]
     Indication: PROPHYLAXIS
     Route: 065
     Dates: end: 20041202
  2. BACTRIM [Suspect]
     Indication: PROPHYLAXIS
     Route: 065
     Dates: end: 20041202
  3. CELLCEPT [Suspect]
     Route: 065
     Dates: end: 20041021
  4. CELLCEPT [Suspect]
     Route: 065
     Dates: start: 20041021, end: 20041028
  5. CELLCEPT [Suspect]
     Route: 065
     Dates: start: 20041028, end: 20041122
  6. CELLCEPT [Suspect]
     Route: 065
     Dates: start: 20041122
  7. PROGRAF [Concomitant]
     Indication: DRUG USE FOR UNKNOWN INDICATION
     Dosage: DOSAGE REGIMEN REPORTED AS 2.5 MG TWICE.
     Route: 065
  8. CORTICOIDS NOS [Concomitant]
     Indication: DRUG USE FOR UNKNOWN INDICATION
     Route: 065

REACTIONS (1)
  - AGRANULOCYTOSIS [None]
